FAERS Safety Report 13643525 (Version 2)
Quarter: 2017Q3

REPORT INFORMATION
  Report Type: Report from Study
  Country: US (occurrence: US)
  Receive Date: 20170612
  Receipt Date: 20170706
  Transmission Date: 20171127
  Serious: Yes (Hospitalization)
  Sender: FDA-Public Use
  Company Number: US-UCBSA-2017021802

PATIENT
  Age: 11 Year
  Sex: Male

DRUGS (8)
  1. BRIVARACETAM PEP [Suspect]
     Active Substance: BRIVARACETAM
     Dosage: 7.75 ML, 2X/DAY (BID)
     Route: 048
     Dates: start: 20170126
  2. ALBUTEROL. [Concomitant]
     Active Substance: ALBUTEROL
     Indication: ASTHMA
     Dosage: 0.08 %, 4X/DAY (QID)
     Dates: start: 20160118
  3. SINGULAIR [Concomitant]
     Active Substance: MONTELUKAST SODIUM
     Indication: ASTHMA
     Dosage: 5 MG, ONCE DAILY (QD)
     Route: 048
     Dates: start: 20161108
  4. FLOVENT HFA [Concomitant]
     Active Substance: FLUTICASONE PROPIONATE
     Indication: ASTHMA
     Dosage: 44 ?G, 2X/DAY (BID)
     Dates: start: 20161108
  5. BRIVARACETAM PEP [Suspect]
     Active Substance: BRIVARACETAM
     Indication: EPILEPSY
     Dosage: 6.75 ML, 2X/DAY (BID)
     Route: 048
     Dates: start: 20160801, end: 20161020
  6. TOPIRAMATE. [Concomitant]
     Active Substance: TOPIRAMATE
     Indication: EPILEPSY
     Dosage: 125 MG, 2X/DAY (BID)
     Route: 048
     Dates: start: 20160620, end: 20170314
  7. BRIVARACETAM PEP [Suspect]
     Active Substance: BRIVARACETAM
     Dosage: 7.0 ML, 2X/DAY (BID)
     Route: 048
     Dates: start: 20161021, end: 20170125
  8. TOPIRAMATE. [Concomitant]
     Active Substance: TOPIRAMATE
     Dosage: 125 MG IN MORINING AND 150 MG IN EVENING
     Route: 048
     Dates: start: 20170315

REACTIONS (2)
  - Asthma [Recovered/Resolved]
  - Seizure [Recovered/Resolved]

NARRATIVE: CASE EVENT DATE: 20170314
